FAERS Safety Report 17020454 (Version 1)
Quarter: 2019Q4

REPORT INFORMATION
  Report Type: Spontaneous
  Country: IT (occurrence: IT)
  Receive Date: 20191112
  Receipt Date: 20191112
  Transmission Date: 20200122
  Serious: Yes (Death)
  Sender: FDA-Public Use
  Company Number: IT-PFIZER INC-2019482073

PATIENT
  Age: 77 Year
  Sex: Female

DRUGS (5)
  1. PROMAZINE [Interacting]
     Active Substance: PROMAZINE
     Dosage: UNK
     Route: 042
  2. PROPOFOL. [Interacting]
     Active Substance: PROPOFOL
     Dosage: UNK
     Route: 042
  3. CHLORPROMAZINE. [Interacting]
     Active Substance: CHLORPROMAZINE
     Dosage: UNK
     Route: 042
  4. MORPHINE [Interacting]
     Active Substance: MORPHINE
     Dosage: UNK
     Route: 042
  5. MIDAZOLAM [Suspect]
     Active Substance: MIDAZOLAM HYDROCHLORIDE
     Dosage: UNK
     Route: 042

REACTIONS (4)
  - Overdose [Fatal]
  - Intentional product misuse [Fatal]
  - Drug abuse [Fatal]
  - Drug interaction [Fatal]

NARRATIVE: CASE EVENT DATE: 20130215
